FAERS Safety Report 21700974 (Version 1)
Quarter: 2022Q4

REPORT INFORMATION
  Report Type: Spontaneous
  Country: FR (occurrence: FR)
  Receive Date: 20221208
  Receipt Date: 20221208
  Transmission Date: 20230112
  Serious: Yes (Other)
  Sender: FDA-Public Use
  Company Number: FR-TEVA-2022-FR-2833154

PATIENT
  Age: 21 Year

DRUGS (6)
  1. CISPLATIN [Suspect]
     Active Substance: CISPLATIN
     Indication: Hepatoblastoma
     Dosage: SIOPEL 4 CHEMOTHERAPY REGIMEN: CONTINUOUS 24-HOUR INFUSION 80 MG/M2 (CUMULATIVE DOSE 480 MG/M2)
     Route: 050
  2. CARBOPLATIN [Suspect]
     Active Substance: CARBOPLATIN
     Indication: Hepatoblastoma
     Dosage: AUC 6.6 MG/ML PER MIN IN CYCLE A 1 HOUR INFUSION PER 3 WEEKS
     Route: 050
  3. CARBOPLATIN [Suspect]
     Active Substance: CARBOPLATIN
     Dosage: AUC 10.6 MG/ML PER MIN IN CYCLE B 1 HOUR INFUSION PER 3 WEEKS
     Route: 050
  4. DOXORUBICIN [Suspect]
     Active Substance: DOXORUBICIN
     Indication: Hepatoblastoma
     Dosage: SIOPEL 4 CHEMOTHERAPY REGIMEN: 60 MG/M2 IN CYCLE A CONTINUOUS 48-HOUR INFUSION EVERY 3 WEEKS
     Route: 050
  5. DOXORUBICIN [Suspect]
     Active Substance: DOXORUBICIN
     Dosage: SIOPEL 4 CHEMOTHERAPY REGIMEN: 50 MG/M2 IN CYCLE B CONTINUOUS 48-HOUR INFUSION EVERY 3 WEEKS
     Route: 050
  6. DOXORUBICIN [Suspect]
     Active Substance: DOXORUBICIN
     Dosage: SIOPEL 4 CHEMOTHERAPY REGIMEN: 40 MG/M2 IN CYCLE C CONTINUOUS 48-HOUR INFUSION EVERY 3 WEEKS
     Route: 050

REACTIONS (1)
  - Cardiac dysfunction [Unknown]
